FAERS Safety Report 13799289 (Version 1)
Quarter: 2017Q3

REPORT INFORMATION
  Report Type: Spontaneous
  Country: US (occurrence: US)
  Receive Date: 20170727
  Receipt Date: 20170727
  Transmission Date: 20171127
  Serious: Yes (Hospitalization)
  Sender: FDA-Public Use
  Company Number: None

PATIENT
  Age: 14 Year
  Sex: Male
  Weight: 73.5 kg

DRUGS (6)
  1. DAUNORUBICIN [Suspect]
     Active Substance: DAUNORUBICIN
     Dates: end: 20170719
  2. VINCRISTINE SULFATE. [Suspect]
     Active Substance: VINCRISTINE SULFATE
     Dates: end: 20170719
  3. ONCASPAR [Suspect]
     Active Substance: PEGASPARGASE
     Dates: end: 20170715
  4. PREDNISONE. [Suspect]
     Active Substance: PREDNISONE
     Dates: end: 20170723
  5. CYTARABINE. [Suspect]
     Active Substance: CYTARABINE
     Dates: end: 20170711
  6. METHOTREXATE. [Suspect]
     Active Substance: METHOTREXATE
     Dates: end: 20170719

REACTIONS (8)
  - Sepsis [None]
  - Pulmonary oedema [None]
  - Neutropenic colitis [None]
  - Blood bilirubin increased [None]
  - Colitis [None]
  - Gastrointestinal wall thickening [None]
  - Abdominal pain [None]
  - Neutrophil count decreased [None]

NARRATIVE: CASE EVENT DATE: 20170720
